FAERS Safety Report 9152420 (Version 2)
Quarter: 2013Q2

REPORT INFORMATION
  Report Type: Spontaneous
  Country: US (occurrence: US)
  Receive Date: 20130308
  Receipt Date: 20130510
  Transmission Date: 20140414
  Serious: Yes (Hospitalization)
  Sender: FDA-Public Use
  Company Number: US-B.I. PHARMACEUTICALS,INC./RIDGEFIELD-2013-BI-05470BP

PATIENT
  Age: 71 Year
  Sex: Female
  Weight: 99.79 kg

DRUGS (12)
  1. PRADAXA [Suspect]
     Indication: ATRIAL FIBRILLATION
     Dosage: 150 MG
     Route: 048
     Dates: start: 20110728, end: 20120302
  2. TRAZODONE [Concomitant]
     Dosage: 50 MG
  3. CLONIDINE [Concomitant]
     Dosage: 0.4 MG
  4. LEVOTHYROXINE [Concomitant]
     Dosage: 50 MCG
  5. COLACE [Concomitant]
     Dosage: 200 MG
  6. ZOCOR [Concomitant]
     Dosage: 5 MG
  7. DITROPAN [Concomitant]
     Dosage: 2.5 MG
  8. PRILOSEC [Concomitant]
     Dosage: 20 MG
  9. VERAPAMIL [Concomitant]
     Dosage: 360 MG
  10. LISINOPRIL [Concomitant]
     Dosage: 10 MG
  11. TIMOLOL [Concomitant]
     Dosage: 0.5 MG
  12. SALSALATE [Concomitant]
     Dosage: 1000 MG

REACTIONS (2)
  - Gastrointestinal haemorrhage [Unknown]
  - Splenic haematoma [Unknown]
